FAERS Safety Report 8046719 (Version 3)
Quarter: 2015Q4

REPORT INFORMATION
  Report Type: Spontaneous
  Country: US (occurrence: US)
  Receive Date: 20110721
  Receipt Date: 20151124
  Transmission Date: 20160305
  Serious: Yes (Hospitalization, Other)
  Sender: FDA-Public Use
  Company Number: US-BAYER-2011-062630

PATIENT
  Age: 39 Year
  Sex: Female
  Weight: 58 kg

DRUGS (13)
  1. MECLIZINE [Concomitant]
     Active Substance: MECLIZINE\MECLIZINE HYDROCHLORIDE
     Route: 048
  2. ASPIRIN. [Concomitant]
     Active Substance: ASPIRIN
     Indication: ATRIAL SEPTAL DEFECT
  3. ZOCOR [Concomitant]
     Active Substance: SIMVASTATIN
  4. LEVBID [Concomitant]
     Active Substance: HYOSCYAMINE SULFATE
     Route: 048
  5. FLEXERIL [Concomitant]
     Active Substance: CYCLOBENZAPRINE HYDROCHLORIDE
  6. LEXAPRO [Concomitant]
     Active Substance: ESCITALOPRAM OXALATE
  7. YASMIN [Suspect]
     Active Substance: DROSPIRENONE\ETHINYL ESTRADIOL
     Indication: CONTRACEPTION
     Dosage: UNK
     Dates: start: 2002, end: 2009
  8. DIAZEPAM. [Concomitant]
     Active Substance: DIAZEPAM
     Route: 048
  9. OCELLA [Suspect]
     Active Substance: DROSPIRENONE\ETHINYL ESTRADIOL
     Indication: CONTRACEPTION
     Dosage: UNK
     Dates: start: 2002, end: 2009
  10. MELOXICAM. [Concomitant]
     Active Substance: MELOXICAM
     Dosage: 15 MG, UNK
     Dates: start: 20090221
  11. NEXIUM [Concomitant]
     Active Substance: ESOMEPRAZOLE MAGNESIUM
     Route: 048
  12. HYOSCYAMINE SULFATE. [Concomitant]
     Active Substance: HYOSCYAMINE SULFATE
  13. VALTREX [Concomitant]
     Active Substance: VALACYCLOVIR HYDROCHLORIDE
     Dosage: 500 MG, UNK
     Dates: start: 20090221

REACTIONS (7)
  - Cerebral infarction [None]
  - Injury [None]
  - Cerebrovascular accident [None]
  - Anxiety [None]
  - Embolism arterial [None]
  - Pain [None]
  - Anhedonia [None]

NARRATIVE: CASE EVENT DATE: 200903
